FAERS Safety Report 8211585-1 (Version None)
Quarter: 2012Q1

REPORT INFORMATION
  Report Type: 
  Country: None (occurrence: None)
  Receive Date: 20120315
  Receipt Date: 20120306
  Transmission Date: 20120608
  Serious: Yes (Other)
  Sender: FDA-Public Use
  Company Number: JP-JNJFOC-20120212685

PATIENT
  Sex: Female

DRUGS (23)
  1. WARFARIN SODIUM [Interacting]
     Dosage: 1 PER 1 DAY
     Route: 048
     Dates: start: 20111012, end: 20111026
  2. ASPIRIN [Concomitant]
     Route: 048
  3. TRAMADOL HYDROCHLORIDE AND ACETAMINOPHEN [Suspect]
     Dosage: 1 DF X 1 PER 1 DAY
     Route: 048
     Dates: start: 20120118, end: 20120123
  4. PRORENAL [Concomitant]
     Route: 048
  5. TEGRETOL [Concomitant]
     Route: 048
  6. TRAMADOL HYDROCHLORIDE AND ACETAMINOPHEN [Suspect]
     Dosage: 2 DF X 1 PER 1 DAY
     Route: 048
     Dates: start: 20120124, end: 20120216
  7. LANSOPRAZOLE [Concomitant]
     Route: 048
  8. TEGRETOL [Concomitant]
     Route: 048
  9. NEUROTROPIN [Concomitant]
     Route: 048
  10. TRAMADOL HYDROCHLORIDE AND ACETAMINOPHEN [Suspect]
     Indication: TRIGEMINAL NEURALGIA
     Dosage: 1 DF X 1 PER 1 DAY
     Route: 048
     Dates: start: 20110826, end: 20110826
  11. WARFARIN SODIUM [Interacting]
     Dosage: 1 PER 1 DAY
     Route: 048
     Dates: start: 20120229, end: 20120229
  12. TANATRIL [Concomitant]
     Route: 048
  13. ZETIA [Concomitant]
     Route: 048
  14. TRAMADOL HYDROCHLORIDE AND ACETAMINOPHEN [Suspect]
     Dosage: 2 DF X 1 PER 1 DAY
     Route: 048
     Dates: start: 20110831, end: 20110912
  15. TRAMADOL HYDROCHLORIDE AND ACETAMINOPHEN [Suspect]
     Dosage: 3 DF X 1 PER 1 DAY
     Route: 048
     Dates: start: 20110913, end: 20111006
  16. WARFARIN SODIUM [Interacting]
     Indication: PRODUCT USED FOR UNKNOWN INDICATION
     Dosage: 1 PER 1 DAY
     Route: 048
     Dates: start: 20110803, end: 20111005
  17. WARFARIN SODIUM [Interacting]
     Dosage: 1 PER 1 DAY
     Route: 048
     Dates: start: 20111027, end: 20120215
  18. AMLODIPINE BESYLATE [Concomitant]
     Route: 048
  19. KAMAG G [Concomitant]
     Route: 048
  20. WARFARIN SODIUM [Interacting]
     Dosage: 1 PER 1 DAY
     Route: 048
     Dates: start: 20111007, end: 20111011
  21. DIGOXIN [Concomitant]
     Route: 065
  22. CRESTOR [Concomitant]
     Route: 048
  23. AMITRIPTYLINE HCL [Concomitant]
     Route: 048

REACTIONS (3)
  - PLATELET COUNT DECREASED [None]
  - PROTHROMBIN TIME PROLONGED [None]
  - DRUG INTERACTION [None]
